FAERS Safety Report 13060444 (Version 1)
Quarter: 2016Q4

REPORT INFORMATION
  Report Type: Report from Study
  Country: US (occurrence: US)
  Receive Date: 20161224
  Receipt Date: 20161224
  Transmission Date: 20170207
  Serious: No
  Sender: FDA-Public Use
  Company Number: US-AMGEN-USASL2016177950

PATIENT
  Age: 56 Year
  Sex: Female

DRUGS (2)
  1. INH [Concomitant]
     Active Substance: ISONIAZID
     Dosage: UNK
     Dates: end: 201610
  2. ENBREL [Suspect]
     Active Substance: ETANERCEPT
     Indication: RHEUMATOID ARTHRITIS
     Dosage: 50 MG, UNK
     Route: 065
     Dates: end: 201608

REACTIONS (4)
  - Dysgeusia [Unknown]
  - Abdominal discomfort [Unknown]
  - Nausea [Unknown]
  - Constipation [Unknown]

NARRATIVE: CASE EVENT DATE: 2016
